FAERS Safety Report 8900569 (Version 1)
Quarter: 2012Q4

REPORT INFORMATION
  Report Type: 
  Country: JP (occurrence: JP)
  Receive Date: 20121109
  Receipt Date: 20121109
  Transmission Date: 20130627
  Serious: Yes (Other)
  Sender: FDA-Public Use
  Company Number: JP-009507513-1211JPN001818

PATIENT
  Age: 71 Year
  Sex: Male

DRUGS (1)
  1. DECADRON [Suspect]
     Indication: PREMEDICATION
     Route: 051

REACTIONS (2)
  - Tetany [Unknown]
  - Facial spasm [Unknown]
